FAERS Safety Report 16059446 (Version 1)
Quarter: 2019Q1

REPORT INFORMATION
  Report Type: Spontaneous
  Country: US (occurrence: US)
  Receive Date: 20190311
  Receipt Date: 20190311
  Transmission Date: 20190418
  Serious: No
  Sender: FDA-Public Use
  Company Number: US-GALDERMA-US18011938

PATIENT
  Age: 74 Year
  Sex: Female

DRUGS (21)
  1. CARBIDOPA/LEVODOPA [Concomitant]
     Active Substance: CARBIDOPA\LEVODOPA
     Dosage: 25/100 MG
  2. ENBREL [Concomitant]
     Active Substance: ETANERCEPT
  3. RECLAST [Concomitant]
     Active Substance: ZOLEDRONIC ACID
     Dosage: 5/100 MG/ML
  4. ZOLEDRONIC ACID [Concomitant]
     Active Substance: ZOLEDRONIC ACID
  5. ALPHAGAN P [Concomitant]
     Active Substance: BRIMONIDINE TARTRATE
     Route: 047
  6. ESCITALOPRAM [Concomitant]
     Active Substance: ESCITALOPRAM OXALATE
  7. LORAZEPAM. [Concomitant]
     Active Substance: LORAZEPAM
  8. TRI-LUMA [Suspect]
     Active Substance: FLUOCINOLONE ACETONIDE\HYDROQUINONE\TRETINOIN
     Indication: PRODUCT USED FOR UNKNOWN INDICATION
     Route: 061
     Dates: start: 201803
  9. RESTASIS [Concomitant]
     Active Substance: CYCLOSPORINE
     Route: 047
  10. FUNGI NAIL (CLOTRIMAZOLE) [Concomitant]
     Active Substance: CLOTRIMAZOLE
  11. ERYTHROMYCIN. [Concomitant]
     Active Substance: ERYTHROMYCIN
     Route: 061
  12. UNSPECIFIED OTC PROBIOTIC [Concomitant]
  13. CITRACAL CALCIUM + VITAMIN D [Concomitant]
  14. VITAMIN D3 [Concomitant]
     Active Substance: CHOLECALCIFEROL
  15. LEFLUNOMIDE. [Concomitant]
     Active Substance: LEFLUNOMIDE
  16. UNITHROID [Concomitant]
     Active Substance: LEVOTHYROXINE SODIUM
  17. LINZESS [Concomitant]
     Active Substance: LINACLOTIDE
     Route: 048
  18. MYRBETRIQ [Concomitant]
     Active Substance: MIRABEGRON
  19. RASAGILINE. [Concomitant]
     Active Substance: RASAGILINE
  20. GOCOVRI [Suspect]
     Active Substance: AMANTADINE
     Indication: DYSKINESIA
     Route: 048
     Dates: start: 201803
  21. ESTRING [Concomitant]
     Active Substance: ESTRADIOL

REACTIONS (3)
  - Dry skin [Not Recovered/Not Resolved]
  - Pruritus [Not Recovered/Not Resolved]
  - Drug ineffective [Not Recovered/Not Resolved]

NARRATIVE: CASE EVENT DATE: 201804
